FAERS Safety Report 5120899-3 (Version None)
Quarter: 2006Q4

REPORT INFORMATION
  Report Type: 
  Country: None (occurrence: None)
  Receive Date: 20061005
  Receipt Date: 20060913
  Transmission Date: 20070319
  Serious: Yes (Other)
  Sender: FDA-Public Use
  Company Number: 2006AP04315

PATIENT
  Age: 25153 Day
  Sex: Male

DRUGS (3)
  1. PULMICORT [Suspect]
     Route: 055
     Dates: start: 20060911, end: 20060912
  2. ATACAND [Concomitant]
     Indication: BLOOD PRESSURE
  3. CECLOR CD [Concomitant]
     Indication: LOWER RESPIRATORY TRACT INFECTION
     Dosage: TWICE A DAY IF NEEDED

REACTIONS (1)
  - SWELLING FACE [None]
